FAERS Safety Report 9180920 (Version 8)
Quarter: 2014Q1

REPORT INFORMATION
  Report Type: Spontaneous
  Country: IE (occurrence: IE)
  Receive Date: 20130322
  Receipt Date: 20140217
  Transmission Date: 20141002
  Serious: Yes (Hospitalization, Other)
  Sender: FDA-Public Use
  Company Number: PHFR2012IE004702

PATIENT
  Age: 69 Year
  Sex: Male

DRUGS (13)
  1. CLOZARIL [Suspect]
     Indication: SCHIZOPHRENIA
     Dosage: UNK
     Route: 048
     Dates: start: 20010701
  2. CLOZARIL [Suspect]
     Dosage: 300 MG, DAILY
     Route: 048
  3. SERIMEL [Suspect]
     Indication: DEPRESSION
     Dosage: 75 MG, UNK
     Route: 048
  4. SERIMEL [Suspect]
     Indication: ANXIETY
  5. LIPITOR [Suspect]
     Indication: LIPIDS ABNORMAL
     Dosage: 40 MG, UNK
     Route: 048
  6. FOLIC ACID [Suspect]
     Indication: FOLATE DEFICIENCY
     Dosage: UNK
     Route: 048
  7. MAXOLON [Suspect]
     Indication: NAUSEA
     Dosage: UNK
     Route: 048
  8. ASPIRIN [Concomitant]
     Indication: AORTIC ANEURYSM
     Dosage: 75 MG, UNK
     Route: 048
  9. CARDICOR [Concomitant]
     Indication: AORTIC ANEURYSM
     Dosage: 2.5 MG, UNK
     Route: 048
  10. SERETIDE [Concomitant]
     Indication: DYSPNOEA
     Dosage: 0.5 MG, BID
     Route: 048
  11. GLUCOPHAGE [Concomitant]
     Dosage: 1000 MG, UNK
     Route: 048
  12. CLONAZEPAM [Concomitant]
     Indication: ANXIETY
     Dosage: 1 MG, UNK
     Route: 048
  13. BISOPROLOL [Concomitant]
     Indication: BLOOD PRESSURE INCREASED
     Dosage: 2.5 MG, UNK
     Route: 048

REACTIONS (12)
  - Aortic aneurysm [Recovering/Resolving]
  - Chronic obstructive pulmonary disease [Recovering/Resolving]
  - Haemoglobin decreased [Recovering/Resolving]
  - Glomerular filtration rate decreased [Recovering/Resolving]
  - Mean cell volume decreased [Recovered/Resolved]
  - Haematocrit decreased [Recovering/Resolving]
  - Blood creatine increased [Recovering/Resolving]
  - Blood urea increased [Recovering/Resolving]
  - Prostatomegaly [Recovering/Resolving]
  - Mean cell haemoglobin decreased [Recovering/Resolving]
  - White blood cell count increased [Recovered/Resolved]
  - Neutrophil count increased [Recovered/Resolved]
